FAERS Safety Report 5122355-5 (Version None)
Quarter: 2006Q4

REPORT INFORMATION
  Report Type: 
  Country: None (occurrence: None)
  Receive Date: 20061004
  Receipt Date: 20060927
  Transmission Date: 20070319
  Serious: Yes (Disabling, Other)
  Sender: FDA-Public Use
  Company Number: 2006BH013629

PATIENT
  Sex: Male

DRUGS (2)
  1. PROMETHAZINE [Suspect]
     Indication: GASTROINTESTINAL DISORDER
     Dosage: IV
     Route: 042
     Dates: start: 20050101, end: 20050101
  2. PAIN MEDICATION [Concomitant]

REACTIONS (8)
  - BURNING SENSATION [None]
  - GASTROINTESTINAL DISORDER [None]
  - IMPAIRED WORK ABILITY [None]
  - INFUSION SITE REACTION [None]
  - MUSCLE SPASMS [None]
  - MUSCULOSKELETAL STIFFNESS [None]
  - PAIN IN EXTREMITY [None]
  - SWELLING [None]
